FAERS Safety Report 9315330 (Version 2)
Quarter: 2013Q2

REPORT INFORMATION
  Report Type: Report from Study
  Country: DE (occurrence: DE)
  Receive Date: 20130529
  Receipt Date: 20130606
  Transmission Date: 20140414
  Serious: Yes (Death)
  Sender: FDA-Public Use
  Company Number: DE-CELGENEUS-062-50794-13053235

PATIENT
  Age: 78 Year
  Sex: Male
  Weight: 74.2 kg

DRUGS (17)
  1. VIDAZA [Suspect]
     Indication: ACUTE MYELOID LEUKAEMIA
     Route: 058
     Dates: start: 20130320, end: 20130425
  2. METOPROLOL [Concomitant]
     Indication: PRODUCT USED FOR UNKNOWN INDICATION
     Route: 065
  3. ROSUVASTATINE [Concomitant]
     Indication: PRODUCT USED FOR UNKNOWN INDICATION
     Route: 065
  4. ZINC [Concomitant]
     Indication: PRODUCT USED FOR UNKNOWN INDICATION
     Route: 065
  5. VITAMIN B [Concomitant]
     Indication: PRODUCT USED FOR UNKNOWN INDICATION
     Route: 065
  6. VITAMIN D [Concomitant]
     Indication: PRODUCT USED FOR UNKNOWN INDICATION
     Route: 065
  7. VITAMIN E [Concomitant]
     Indication: PRODUCT USED FOR UNKNOWN INDICATION
     Route: 065
  8. VITAMIN A [Concomitant]
     Indication: PRODUCT USED FOR UNKNOWN INDICATION
     Route: 065
  9. ALLOPURINOL [Concomitant]
     Indication: PROPHYLAXIS
     Dosage: 150 AND 300 MG IN TURNS
     Route: 065
     Dates: start: 201303, end: 201305
  10. SELENIUM [Concomitant]
     Indication: PRODUCT USED FOR UNKNOWN INDICATION
     Route: 065
  11. LEVODOPA/BENZERASID [Concomitant]
     Indication: PRODUCT USED FOR UNKNOWN INDICATION
     Route: 065
  12. BELOC HERZ [Concomitant]
     Indication: AORTIC STENOSIS
     Route: 065
  13. BELOC HERZ [Concomitant]
     Indication: CORONARY ARTERY DISEASE
  14. BELOC HERZ [Concomitant]
     Indication: HYPERTENSION
  15. CRESTOR [Concomitant]
     Indication: LIPID METABOLISM DISORDER
     Dosage: 5 MILLIGRAM
     Route: 065
  16. TWYNSTA [Concomitant]
     Indication: HYPERTENSION
     Route: 065
  17. MADOPAR [Concomitant]
     Indication: PARKINSON^S DISEASE
     Dosage: 1-1-0.5
     Route: 065

REACTIONS (1)
  - Acute myeloid leukaemia [Fatal]
